FAERS Safety Report 26034674 (Version 6)
Quarter: 2025Q4

REPORT INFORMATION
  Report Type: Report from Study
  Country: CN (occurrence: CN)
  Receive Date: 20251112
  Receipt Date: 20251217
  Transmission Date: 20260118
  Serious: Yes (Other)
  Sender: PFIZER
  Company Number: CN-PFIZER INC-PV202500131685

PATIENT
  Age: 19 Year
  Sex: Male

DRUGS (3)
  1. XYNTHA [Suspect]
     Active Substance: MOROCTOCOG ALFA
     Dosage: 2000IU EACH TIME
  2. XYNTHA [Suspect]
     Active Substance: MOROCTOCOG ALFA
     Dosage: PREOPERATIVE 3000 IU, 1X/DAY
  3. XYNTHA [Suspect]
     Active Substance: MOROCTOCOG ALFA
     Dosage: POSTOPERATIVE 2000 IU, 1X/DAY

REACTIONS (4)
  - Haemophilic arthropathy [Recovering/Resolving]
  - Arthralgia [Unknown]
  - Chondropathy [Unknown]
  - Hyperplasia [Unknown]

NARRATIVE: CASE EVENT DATE: 20240101
